FAERS Safety Report 5776174-7 (Version None)
Quarter: 2008Q2

REPORT INFORMATION
  Report Type: 
  Country: None (occurrence: None)
  Receive Date: 20080613
  Receipt Date: 20080609
  Transmission Date: 20081010
  Serious: Yes (Hospitalization)
  Sender: FDA-Public Use
  Company Number: 2008SP011199

PATIENT
  Age: 78 Year
  Sex: Male
  Weight: 79.2 kg

DRUGS (2)
  1. PEG-INTRON [Suspect]
     Indication: METASTATIC MALIGNANT MELANOMA
     Dosage: 238 MCG; QW; SC
     Route: 058
     Dates: start: 20080527
  2. SORAFENIB (SORAFENIB) [Suspect]
     Indication: METASTATIC MALIGNANT MELANOMA
     Dosage: 400 MG; QD; PO
     Route: 048
     Dates: start: 20080527

REACTIONS (1)
  - PELVIC VENOUS THROMBOSIS [None]
